FAERS Safety Report 4720720-9 (Version None)
Quarter: 2005Q3

REPORT INFORMATION
  Report Type: 
  Country: None (occurrence: None)
  Receive Date: 20050721
  Receipt Date: 20050713
  Transmission Date: 20060218
  Serious: Yes (Other)
  Sender: FDA-Public Use
  Company Number: 13031

PATIENT
  Age: 33 Year
  Sex: Female

DRUGS (4)
  1. WELLBUTRIN [Suspect]
     Indication: DEPRESSION
     Dosage: 300MG PER DAY
  2. UNSPECIFIED SSRI [Concomitant]
  3. MOOD MEDICATION [Concomitant]
  4. TRICYCLIC ANTIDEPRESSANT [Concomitant]

REACTIONS (1)
  - ABORTION SPONTANEOUS [None]
